FAERS Safety Report 14421120 (Version 2)
Quarter: 2018Q2

REPORT INFORMATION
  Report Type: Not Available
  Country: US (occurrence: US)
  Receive Date: 20180122
  Receipt Date: 20180417
  Transmission Date: 20180711
  Serious: No
  Sender: FDA-Public Use
  Company Number: US-NEUROCRINE BIOSCIENCES INC.-2018NBI00059

PATIENT
  Age: 77 Year
  Sex: Female

DRUGS (9)
  1. NIFEDIPINE. [Concomitant]
     Active Substance: NIFEDIPINE
  2. LEVOTHYROXINE. [Concomitant]
     Active Substance: LEVOTHYROXINE
     Indication: THYROID DISORDER
  3. FUROSEMIDE. [Concomitant]
     Active Substance: FUROSEMIDE
  4. CENTRUM MULTIVITAMINS FOR WOMEN OVER 50 [Concomitant]
  5. INGREZZA [Suspect]
     Active Substance: VALBENAZINE
     Indication: DYSKINESIA
     Route: 048
     Dates: start: 20171214, end: 20171221
  6. ROPINOROLE [Concomitant]
     Active Substance: ROPINIROLE
  7. OMEPRAZOLE. [Concomitant]
     Active Substance: OMEPRAZOLE
  8. LOVASTATIN. [Concomitant]
     Active Substance: LOVASTATIN
     Indication: BLOOD CHOLESTEROL INCREASED
  9. OXYBUTIN [Concomitant]
     Active Substance: OXYBUTYNIN

REACTIONS (6)
  - Loss of personal independence in daily activities [Unknown]
  - Sluggishness [Recovered/Resolved]
  - Hypoaesthesia [Unknown]
  - Gait inability [Recovered/Resolved]
  - Somnolence [Recovered/Resolved]
  - Drug ineffective [None]

NARRATIVE: CASE EVENT DATE: 201712
